FAERS Safety Report 15471471 (Version 1)
Quarter: 2018Q4

REPORT INFORMATION
  Report Type: Spontaneous
  Country: US (occurrence: US)
  Receive Date: 20181007
  Receipt Date: 20181007
  Transmission Date: 20190205
  Serious: No
  Sender: FDA-Public Use
  Company Number: US-009507513-1810USA000758

PATIENT
  Sex: Female

DRUGS (1)
  1. SINEMET [Suspect]
     Active Substance: CARBIDOPA\LEVODOPA
     Indication: PARKINSON^S DISEASE
     Dosage: UNK
     Route: 048

REACTIONS (4)
  - Freezing phenomenon [Recovered/Resolved]
  - Movement disorder [Recovered/Resolved]
  - Gait inability [Recovered/Resolved]
  - Product dose omission [Unknown]

NARRATIVE: CASE EVENT DATE: 2008
